FAERS Safety Report 9521463 (Version 4)
Quarter: 2013Q4

REPORT INFORMATION
  Report Type: Spontaneous
  Country: IT (occurrence: IT)
  Receive Date: 20130913
  Receipt Date: 20131118
  Transmission Date: 20140711
  Serious: Yes (Hospitalization)
  Sender: FDA-Public Use
  Company Number: IT-PFIZER INC-2013263366

PATIENT
  Age: 64 Year
  Sex: Female

DRUGS (7)
  1. TRIAZOLAM [Suspect]
     Indication: INTENTIONAL SELF-INJURY
     Dosage: 8.5 G, TOTAL
     Route: 048
     Dates: start: 20130905, end: 20130905
  2. CUMADIN [Concomitant]
     Dosage: UNK
  3. EUTIROX [Concomitant]
     Dosage: UNK
  4. CARVEDILOL [Concomitant]
     Dosage: UNK
  5. METFORMIN HYDROCHLORIDE [Concomitant]
     Dosage: UNK
  6. OMEPRAZOLE [Concomitant]
     Dosage: UNK
  7. NITROGLICERINA [Concomitant]
     Dosage: UNK

REACTIONS (4)
  - Overdose [Recovered/Resolved]
  - Intentional self-injury [Recovered/Resolved]
  - Drug abuse [Recovered/Resolved]
  - Coma [Recovered/Resolved]
